FAERS Safety Report 4551642-4 (Version None)
Quarter: 2005Q1

REPORT INFORMATION
  Report Type: 
  Country: None (occurrence: None)
  Receive Date: 20050112
  Receipt Date: 20041214
  Transmission Date: 20050727
  Serious: Yes (Death, Hospitalization, Other)
  Sender: FDA-Public Use
  Company Number: US_0408105111

PATIENT
  Age: 79 Year
  Sex: Female
  Weight: 82 kg

DRUGS (45)
  1. ZYPREXA [Suspect]
     Indication: DEPRESSION
     Dosage: 5 MG
     Dates: start: 20000109, end: 20020522
  2. VIOXX [Concomitant]
  3. RISPERIDONE [Concomitant]
  4. CLONAZEPAM [Concomitant]
  5. THORAZINE [Concomitant]
  6. LITHIUM [Concomitant]
  7. ATROVENT COMP [Concomitant]
  8. FOSAMAX [Concomitant]
  9. NARDIL [Concomitant]
  10. PRILOSEC (OMEPRAZOLE RATIOPHARM) [Concomitant]
  11. ATIVAN [Concomitant]
  12. ENTERIC ASPIRIN [Concomitant]
  13. MAVIK [Concomitant]
  14. OS-CAL [Concomitant]
  15. HUMABID (GUAIFENESIN L.A.) [Concomitant]
  16. NEURONTIN (GABAPENTIN PFIZER) [Concomitant]
  17. VITAMIN C [Concomitant]
  18. ZINC SULFATE [Concomitant]
  19. PREDNISONE [Concomitant]
  20. SUCRALFATE [Concomitant]
  21. MUCOMYST (ACETYLCYSTEINE SODIUM) [Concomitant]
  22. LEVAQUIN [Concomitant]
  23. GENTEAL LUBRICANT EYE DROPS (GENTEAL LUBRICANT EYE DROPS) [Concomitant]
  24. GILOXAN (CIPROVLOXACIN HYDROCHLORIDE) [Concomitant]
  25. VOLTAREN [Concomitant]
  26. DARVOCET-N 100 [Concomitant]
  27. SIMETHICONE [Concomitant]
  28. MELLARIL [Concomitant]
  29. OXYCONTIN (OXYCODOE HYDROCHLORIDE) [Concomitant]
  30. FLOVENT [Concomitant]
  31. ADVAIR DISKUS 100/50 [Concomitant]
  32. CALTRATE + D [Concomitant]
  33. ULTRAM [Concomitant]
  34. COMBIVENT [Concomitant]
  35. PROVENTIL (SALBUTAMOL SULFATE) [Concomitant]
  36. METHYLPREDNISOLONE [Concomitant]
  37. PERI-COLACE [Concomitant]
  38. LASIX [Concomitant]
  39. DITROPAN XL [Concomitant]
  40. ARICEPT [Concomitant]
  41. EFFEXOR [Concomitant]
  42. REMERON (MIRTAZAPINE ORIFARM) [Concomitant]
  43. MACROBID [Concomitant]
  44. ELMIRON [Concomitant]
  45. SENOKOT (SENNA ALEXANDRINA) [Concomitant]

REACTIONS (51)
  - ANAEMIA [None]
  - AORTIC ANEURYSM [None]
  - ARTHRALGIA [None]
  - ARTHRITIS [None]
  - ATRIOVENTRICULAR BLOCK FIRST DEGREE [None]
  - BACK PAIN [None]
  - BIPOLAR DISORDER [None]
  - BLOOD CALCIUM DECREASED [None]
  - BOWEL SOUNDS ABNORMAL [None]
  - BRONCHITIS [None]
  - CARDIOMEGALY [None]
  - CELLULITIS [None]
  - CHRONIC OBSTRUCTIVE AIRWAYS DISEASE EXACERBATED [None]
  - COMA [None]
  - CONDITION AGGRAVATED [None]
  - COUGH [None]
  - CYSTITIS INTERSTITIAL [None]
  - DECREASED APPETITE [None]
  - DELIRIUM [None]
  - DIARRHOEA [None]
  - DISSOCIATION [None]
  - DIZZINESS [None]
  - DRUG INEFFECTIVE [None]
  - DRUG INTERACTION [None]
  - ELECTROCARDIOGRAM ST SEGMENT ABNORMAL [None]
  - ENCEPHALOPATHY [None]
  - EOSINOPHIL COUNT INCREASED [None]
  - HAEMORRHAGE [None]
  - HALLUCINATION [None]
  - HYPERGLYCAEMIA [None]
  - HYPERHIDROSIS [None]
  - HYPERTENSION [None]
  - HYPOTENSION [None]
  - INCREASED APPETITE [None]
  - INFLAMMATION [None]
  - MAJOR DEPRESSION [None]
  - MEDICATION ERROR [None]
  - NIGHTMARE [None]
  - OVERDOSE [None]
  - PANCREATITIS HAEMORRHAGIC [None]
  - PARANOIA [None]
  - PROTEIN TOTAL DECREASED [None]
  - RESTLESSNESS [None]
  - SUICIDAL IDEATION [None]
  - TREMOR [None]
  - UPPER RESPIRATORY TRACT INFECTION [None]
  - URINARY TRACT INFECTION [None]
  - UTERINE LEIOMYOMA [None]
  - VAGINAL INFECTION [None]
  - VISUAL DISTURBANCE [None]
  - WEIGHT FLUCTUATION [None]
